FAERS Safety Report 16773196 (Version 1)
Quarter: 2019Q3

REPORT INFORMATION
  Report Type: Spontaneous
  Country: US (occurrence: US)
  Receive Date: 20190904
  Receipt Date: 20190904
  Transmission Date: 20191005
  Serious: No
  Sender: FDA-Public Use
  Company Number: US-IGSA-SR10009027

PATIENT
  Age: 58 Year
  Sex: Male

DRUGS (16)
  1. GAMUNEX-C [Suspect]
     Active Substance: HUMAN IMMUNOGLOBULIN G
     Indication: CHRONIC INFLAMMATORY DEMYELINATING POLYRADICULONEUROPATHY
     Dosage: 50 G, UNK
     Route: 042
     Dates: start: 20190724, end: 20190724
  2. VITAMIN B12 [Concomitant]
     Active Substance: CYANOCOBALAMIN
  3. ATORVASTATIN CALCIUM. [Concomitant]
     Active Substance: ATORVASTATIN CALCIUM
  4. LYRICA [Concomitant]
     Active Substance: PREGABALIN
  5. HEPARIN [Concomitant]
     Active Substance: HEPARIN SODIUM
  6. LANTUS [Concomitant]
     Active Substance: INSULIN GLARGINE
  7. MAPAP [Concomitant]
     Active Substance: ACETAMINOPHEN
  8. ZETIA [Concomitant]
     Active Substance: EZETIMIBE
  9. DIPHENHYDRAMINE HCL [Concomitant]
     Active Substance: DIPHENHYDRAMINE HYDROCHLORIDE
  10. RAMIPRIL. [Concomitant]
     Active Substance: RAMIPRIL
  11. MELOXICAM. [Concomitant]
     Active Substance: MELOXICAM
  12. CARVEDILOL. [Concomitant]
     Active Substance: CARVEDILOL
  13. FLOMAX [Concomitant]
     Active Substance: TAMSULOSIN HYDROCHLORIDE
  14. TRAMADOL HCL [Concomitant]
     Active Substance: TRAMADOL HYDROCHLORIDE
  15. NORMAL SALINE [Concomitant]
     Active Substance: SODIUM CHLORIDE
  16. METFORMIN HCL [Concomitant]
     Active Substance: METFORMIN HYDROCHLORIDE

REACTIONS (3)
  - Swollen tongue [Unknown]
  - Pruritus [Unknown]
  - Urticaria [Unknown]

NARRATIVE: CASE EVENT DATE: 20190724
